FAERS Safety Report 5280910-6 (Version None)
Quarter: 2007Q1

REPORT INFORMATION
  Report Type: 
  Country: None (occurrence: None)
  Receive Date: 20070329
  Receipt Date: 20070320
  Transmission Date: 20070707
  Serious: Yes (Hospitalization, Other)
  Sender: FDA-Public Use
  Company Number: US-ELI_LILLY_AND_COMPANY-US200703004038

PATIENT
  Age: 72 Year
  Sex: Male

DRUGS (6)
  1. FORTEO [Suspect]
     Indication: OSTEOPOROSIS
     Dosage: 20 UG, UNK
     Dates: start: 20050601, end: 20070228
  2. FORTEO [Suspect]
     Dosage: 20 UG, UNK
     Dates: start: 20070301
  3. ACTONEL [Concomitant]
     Dates: end: 20060101
  4. CALCIUM [Concomitant]
     Dates: end: 20070228
  5. LIPITOR [Concomitant]
     Dates: end: 20070228
  6. TRIAMTERENE AND HYDROCHLOROTHIAZIDE [Concomitant]

REACTIONS (7)
  - ABDOMINAL PAIN UPPER [None]
  - DIARRHOEA [None]
  - DYSPEPSIA [None]
  - HIP ARTHROPLASTY [None]
  - NAUSEA [None]
  - STOMACH DISCOMFORT [None]
  - VOMITING [None]
